FAERS Safety Report 4643277-X (Version None)
Quarter: 2005Q2

REPORT INFORMATION
  Report Type: 
  Country: None (occurrence: None)
  Receive Date: 20050421
  Receipt Date: 20050413
  Transmission Date: 20051028
  Serious: Yes (Other)
  Sender: FDA-Public Use
  Company Number: 2005051715

PATIENT
  Age: 77 Year
  Sex: Male

DRUGS (7)
  1. ALDACTONE [Suspect]
     Indication: HYPERTENSION
     Dosage: 50 MG (25 MG, TWICE DAILY), ORAL
     Route: 048
     Dates: start: 20050314
  2. TERAZOSIN HYDROCHLORIDE [Concomitant]
  3. HYDROCHLOROTHIAZIDE [Concomitant]
  4. ATENOLOL [Concomitant]
  5. INSULIN ASPART (INSULIN ASPART) [Concomitant]
  6. METHYLPREDNISOLONE [Concomitant]
  7. TELMISARTAN (TELMISARTAN) [Concomitant]

REACTIONS (2)
  - BLOOD GLUCOSE INCREASED [None]
  - BLOOD SODIUM DECREASED [None]
